FAERS Safety Report 16712218 (Version 1)
Quarter: 2019Q3

REPORT INFORMATION
  Report Type: Other
  Country: IE (occurrence: IE)
  Receive Date: 20190816
  Receipt Date: 20190816
  Transmission Date: 20191004
  Serious: Yes (Congenital Anomaly)
  Sender: FDA-Public Use
  Company Number: IE-VISTAPHARM, INC.-VER201908-000821

PATIENT

DRUGS (1)
  1. METHADONE [Suspect]
     Active Substance: METHADONE HYDROCHLORIDE
     Dosage: UNKNOWN (EXPOSURE WAS IN THE FIRST TRIMESTER)
     Route: 064

REACTIONS (5)
  - Foetal alcohol syndrome [Unknown]
  - Micrognathia [Unknown]
  - Cleft palate [Unknown]
  - Foetal exposure during pregnancy [Unknown]
  - Pierre Robin syndrome [Unknown]
